FAERS Safety Report 24013999 (Version 1)
Quarter: 2024Q2

REPORT INFORMATION
  Report Type: Spontaneous
  Country: CN (occurrence: CN)
  Receive Date: 20240626
  Receipt Date: 20240626
  Transmission Date: 20240716
  Serious: Yes (Other)
  Sender: FDA-Public Use
  Company Number: CN-PADAGIS-2024PAD01033

PATIENT

DRUGS (17)
  1. DOXORUBICIN HYDROCHLORIDE [Suspect]
     Active Substance: DOXORUBICIN HYDROCHLORIDE
     Indication: Peripheral T-cell lymphoma unspecified stage III
     Dosage: 20 MG DRIP ON DAY 1
     Route: 042
  2. DOXORUBICIN HYDROCHLORIDE [Suspect]
     Active Substance: DOXORUBICIN HYDROCHLORIDE
     Dosage: UNK (SECOND COURSE)
     Route: 065
     Dates: start: 202303
  3. CYCLOPHOSPHAMIDE [Suspect]
     Active Substance: CYCLOPHOSPHAMIDE
     Indication: Peripheral T-cell lymphoma unspecified stage III
     Dosage: 1 G (INTRAVENOUS DRIP) D1
     Route: 042
  4. CYCLOPHOSPHAMIDE [Suspect]
     Active Substance: CYCLOPHOSPHAMIDE
     Dosage: UNK (SECOND COURSE)
     Route: 065
     Dates: start: 202303
  5. CYCLOPHOSPHAMIDE [Suspect]
     Active Substance: CYCLOPHOSPHAMIDE
     Dosage: 1 G (INTRAVENOUS DRIP) D1
     Route: 042
     Dates: start: 202305
  6. CYCLOPHOSPHAMIDE [Suspect]
     Active Substance: CYCLOPHOSPHAMIDE
     Dosage: 1 G (INTRAVENOUS DRIP) D1
     Route: 042
     Dates: start: 202306
  7. VINCRISTINE [Suspect]
     Active Substance: VINCRISTINE
     Indication: Peripheral T-cell lymphoma unspecified stage III
     Dosage: 2 MG (INTRAVENOUS DRIP) ON DAY 1
     Route: 042
  8. VINCRISTINE [Suspect]
     Active Substance: VINCRISTINE
     Dosage: UNK (SECOND COURSE)
     Route: 065
     Dates: start: 202303
  9. VINCRISTINE [Suspect]
     Active Substance: VINCRISTINE
     Dosage: 2 MG (INTRAVENOUS DRIP) ON DAY 1
     Route: 042
     Dates: start: 202305
  10. VINCRISTINE [Suspect]
     Active Substance: VINCRISTINE
     Dosage: 2 MG (INTRAVENOUS DRIP) ON DAY 1
     Route: 042
     Dates: start: 202306
  11. ETOPOSIDE [Suspect]
     Active Substance: ETOPOSIDE
     Indication: Peripheral T-cell lymphoma unspecified stage III
     Dosage: 0.1 G IV DRIP, D1-3
     Route: 042
  12. ETOPOSIDE [Suspect]
     Active Substance: ETOPOSIDE
     Dosage: UNK (SECOND COURSE)
     Route: 065
     Dates: start: 202303
  13. ETOPOSIDE [Suspect]
     Active Substance: ETOPOSIDE
     Dosage: 0.1 G IV DRIP, D1-3
     Route: 042
     Dates: start: 202305
  14. PREDNISONE [Suspect]
     Active Substance: PREDNISONE
     Indication: Peripheral T-cell lymphoma unspecified stage II
     Dosage: 60 MG, QD (D1-5)
     Route: 065
  15. PREDNISONE [Suspect]
     Active Substance: PREDNISONE
     Dosage: UNK (SECOND COURSE)
     Route: 065
     Dates: start: 202303
  16. PREDNISONE [Suspect]
     Active Substance: PREDNISONE
     Dosage: 50 MG, QD (D1-5)
     Route: 065
     Dates: start: 202305
  17. PREDNISONE [Suspect]
     Active Substance: PREDNISONE
     Dosage: 50 MG, QD (D1-5)
     Route: 065
     Dates: start: 202306

REACTIONS (4)
  - Acute kidney injury [Recovering/Resolving]
  - Cardiac failure [Recovering/Resolving]
  - Drug intolerance [Unknown]
  - Product use in unapproved indication [Unknown]
